FAERS Safety Report 9696231 (Version 1)
Quarter: 2013Q4

REPORT INFORMATION
  Report Type: Spontaneous
  Country: CA (occurrence: CA)
  Receive Date: 20131119
  Receipt Date: 20131119
  Transmission Date: 20140711
  Serious: Yes (Hospitalization)
  Sender: FDA-Public Use
  Company Number: CA-ASTRAZENECA-2013SE83702

PATIENT
  Age: 28 Year
  Sex: Female
  Weight: 58.1 kg

DRUGS (2)
  1. SEROQUEL XR [Suspect]
     Route: 048
  2. ATIVAN [Concomitant]

REACTIONS (4)
  - Blood lactate dehydrogenase increased [Recovered/Resolved]
  - Alanine aminotransferase increased [Recovered/Resolved]
  - Aspartate aminotransferase increased [Recovered/Resolved]
  - Gamma-glutamyltransferase increased [Recovered/Resolved]
